FAERS Safety Report 11922512 (Version 1)
Quarter: 2016Q1

REPORT INFORMATION
  Report Type: Spontaneous
  Country: GB (occurrence: GB)
  Receive Date: 20160115
  Receipt Date: 20160115
  Transmission Date: 20160526
  Serious: Yes (Other)
  Sender: FDA-Public Use
  Company Number: PHHY2016GB001158

PATIENT
  Age: 18 Year
  Sex: Female

DRUGS (1)
  1. PHENOXYMETHYLPENICILLIN [Suspect]
     Active Substance: PENICILLIN V
     Indication: TONSILLITIS
     Dosage: 2 DF, QID
     Route: 048
     Dates: start: 20151229

REACTIONS (2)
  - Rash pruritic [Unknown]
  - Paraesthesia [Unknown]
